FAERS Safety Report 8121538-X (Version None)
Quarter: 2012Q1

REPORT INFORMATION
  Report Type: 
  Country: None (occurrence: None)
  Receive Date: 20120207
  Receipt Date: 20120206
  Transmission Date: 20120608
  Serious: Yes (Hospitalization)
  Sender: FDA-Public Use
  Company Number: DL2012-0095

PATIENT
  Age: 20 Year
  Sex: Female

DRUGS (3)
  1. MIFEPRISTONE (MIFEPREX) [Suspect]
     Indication: ABORTION INDUCED
     Dosage: 200 MG, ORAL
     Route: 048
     Dates: start: 20110712
  2. MISOPROSTOL [Suspect]
     Dosage: 800 MCG, BUCCAL
     Route: 002
     Dates: start: 20110713
  3. DOXYCYCLINE [Concomitant]

REACTIONS (6)
  - HEADACHE [None]
  - HAEMORRHAGE [None]
  - ANAEMIA [None]
  - MUSCLE SPASMS [None]
  - ABORTION INCOMPLETE [None]
  - PAIN [None]
